FAERS Safety Report 19289714 (Version 2)
Quarter: 2021Q2

REPORT INFORMATION
  Report Type: Spontaneous
  Country: US (occurrence: US)
  Receive Date: 20210521
  Receipt Date: 20210614
  Transmission Date: 20210717
  Serious: No
  Sender: FDA-Public Use
  Company Number: US-GILEAD-2021-0530379

PATIENT
  Sex: Female

DRUGS (7)
  1. FOLIC ACID. [Concomitant]
     Active Substance: FOLIC ACID
  2. HUMIRA [Concomitant]
     Active Substance: ADALIMUMAB
  3. LOSARTAN POTASSIUM. [Concomitant]
     Active Substance: LOSARTAN POTASSIUM
  4. CYMBALTA [Concomitant]
     Active Substance: DULOXETINE HYDROCHLORIDE
  5. IBUPROFEN. [Concomitant]
     Active Substance: IBUPROFEN
  6. EPCLUSA [Suspect]
     Active Substance: SOFOSBUVIR\VELPATASVIR
     Indication: CHRONIC HEPATITIS C
     Dosage: 1 DOSAGE FORM, QD
     Route: 048
     Dates: start: 202105
  7. LEVOTHYROXINE SODIUM. [Concomitant]
     Active Substance: LEVOTHYROXINE SODIUM

REACTIONS (6)
  - Thyroid hormones increased [Unknown]
  - Pain [Unknown]
  - Intentional dose omission [Unknown]
  - Headache [Recovered/Resolved]
  - Hypertension [Unknown]
  - Insomnia [Unknown]
